FAERS Safety Report 15942277 (Version 2)
Quarter: 2019Q1

REPORT INFORMATION
  Report Type: Spontaneous
  Country: JP (occurrence: JP)
  Receive Date: 20190209
  Receipt Date: 20190228
  Transmission Date: 20190417
  Serious: Yes (Hospitalization)
  Sender: FDA-Public Use
  Company Number: JP-ROCHE-2260073

PATIENT
  Age: 38 Year
  Sex: Female

DRUGS (4)
  1. HERCEPTIN [Suspect]
     Active Substance: TRASTUZUMAB
     Indication: BREAST CANCER
     Route: 041
     Dates: start: 20171212, end: 20190108
  2. CAMSHIA [Suspect]
     Active Substance: AMLODIPINE BESYLATE\CANDESARTAN CILEXETIL
     Indication: PRODUCT USED FOR UNKNOWN INDICATION
     Dosage: ON 19/JAN/2019, RECEIVED MOST RECENT DOSE OF AMLODIPINE BESILATE/CANDESARTAN CILEXETIL
     Route: 048
  3. TAMOXIFEN CITRATE. [Concomitant]
     Active Substance: TAMOXIFEN CITRATE
     Indication: BREAST CANCER
     Dosage: IN THE MORNING
     Route: 048
     Dates: end: 201901
  4. MESALAZINE [Concomitant]
     Active Substance: MESALAMINE
     Route: 065
     Dates: end: 201901

REACTIONS (1)
  - Rhabdomyolysis [Recovered/Resolved]

NARRATIVE: CASE EVENT DATE: 20190118
